FAERS Safety Report 14449065 (Version 2)
Quarter: 2018Q1

REPORT INFORMATION
  Report Type: Other
  Country: None (occurrence: IT)
  Receive Date: 20180126
  Receipt Date: 20180126
  Transmission Date: 20180509
  Serious: Yes (Other)
  Sender: FDA-Public Use
  Company Number: IT-LABORATOIRE HRA PHARMA-2040889

PATIENT
  Age: 66 Year
  Sex: Male
  Weight: 70 kg

DRUGS (5)
  1. DOXORUBICIN [Suspect]
     Active Substance: DOXORUBICIN
  2. CISPLATIN. [Suspect]
     Active Substance: CISPLATIN
  3. METOPIRONE [Suspect]
     Active Substance: METYRAPONE
     Indication: CUSHING^S SYNDROME
     Route: 048
  4. MITOTANE [Suspect]
     Active Substance: MITOTANE
  5. ETOPOSIDE. [Suspect]
     Active Substance: ETOPOSIDE

REACTIONS (3)
  - Anaemia [Unknown]
  - Nausea [Unknown]
  - Asthenia [Unknown]
